FAERS Safety Report 8505706 (Version 2)
Quarter: 2014Q1

REPORT INFORMATION
  Report Type: Spontaneous
  Country: US (occurrence: US)
  Receive Date: 20120412
  Receipt Date: 20140121
  Transmission Date: 20141002
  Serious: Yes (Other)
  Sender: FDA-Public Use
  Company Number: US-BAYER-2012-033338

PATIENT
  Age: 44 Year
  Sex: Female

DRUGS (7)
  1. YAZ [Suspect]
     Dosage: UNK
     Dates: start: 200903, end: 201003
  2. ALPRAZOLAM [Concomitant]
     Dosage: 0.25 MG, UNK
  3. METHOCARBAMOL [Concomitant]
     Dosage: 750 MG, UNK
  4. NABUMETONE [Concomitant]
     Dosage: 750 MG, UNK
  5. TRAMADOL [Concomitant]
     Dosage: 50 MG, UNK
  6. MELOXICAM [Concomitant]
     Dosage: 15 MG, UNK
  7. ZOLPIDEM TARTRATE [Concomitant]
     Dosage: 10 MG, UNK

REACTIONS (10)
  - Gallbladder disorder [None]
  - Cholecystitis chronic [None]
  - Gallbladder pain [None]
  - Post cholecystectomy syndrome [None]
  - Psychological trauma [None]
  - Injury [None]
  - Anxiety [None]
  - Pain [None]
  - Anhedonia [None]
  - Gastrointestinal disorder [None]
